FAERS Safety Report 7538835-9 (Version None)
Quarter: 2011Q2

REPORT INFORMATION
  Report Type: 
  Country: None (occurrence: None)
  Receive Date: 20110610
  Receipt Date: 20110527
  Transmission Date: 20111010
  Serious: Yes (Hospitalization, Other)
  Sender: FDA-Public Use
  Company Number: US-BAYER-200938995NA

PATIENT
  Age: 15 Year
  Sex: Female
  Weight: 52 kg

DRUGS (13)
  1. MACROBID [Concomitant]
     Indication: DYSURIA
     Dosage: 100 MG, UNK
     Route: 048
     Dates: start: 20090206
  2. FLEXERIL [Concomitant]
     Dosage: 5 MG, HS
     Route: 048
     Dates: start: 20081202
  3. ANTIBIOTICS [Concomitant]
     Indication: PRODUCT USED FOR UNKNOWN INDICATION
     Dates: start: 19940101, end: 20090615
  4. VITAMIN B-12 [Concomitant]
     Indication: PRODUCT USED FOR UNKNOWN INDICATION
  5. LODINE [Concomitant]
     Dosage: 400 MG, BID
     Route: 048
     Dates: start: 20081202
  6. YAZ [Suspect]
     Indication: DYSMENORRHOEA
     Dosage: UNK
     Route: 048
     Dates: start: 20070701, end: 20090914
  7. YASMIN [Suspect]
     Indication: PRODUCT USED FOR UNKNOWN INDICATION
  8. BACTRIM DS [Concomitant]
     Dosage: UNK UNK, BID
     Route: 048
     Dates: start: 20091202
  9. MACROBID [Concomitant]
     Indication: MICTURITION URGENCY
  10. OMNICEF [Concomitant]
     Dosage: 300 MG, BID
     Route: 048
     Dates: start: 20081105
  11. ADVIL LIQUI-GELS [Concomitant]
     Indication: PRODUCT USED FOR UNKNOWN INDICATION
     Dosage: UNK
     Dates: start: 20060101, end: 20090101
  12. NSAID'S [Concomitant]
  13. MOTRIN [Concomitant]
     Dosage: UNK MG, UNK
     Route: 048
     Dates: start: 20090206

REACTIONS (10)
  - CHOLECYSTITIS CHRONIC [None]
  - VOMITING [None]
  - GASTRITIS [None]
  - BILIARY DYSKINESIA [None]
  - CHRONIC HEPATITIS [None]
  - LIVER FUNCTION TEST ABNORMAL [None]
  - NAUSEA [None]
  - APPENDICITIS [None]
  - PANCREATIC ENZYMES INCREASED [None]
  - ABDOMINAL PAIN UPPER [None]
